FAERS Safety Report 10083548 (Version 1)
Quarter: 2014Q2

REPORT INFORMATION
  Report Type: Spontaneous
  Country: US (occurrence: None)
  Receive Date: 20140416
  Receipt Date: 20140416
  Transmission Date: 20141212
  Serious: Yes (Hospitalization)
  Sender: FDA-Public Use
  Company Number: None

PATIENT
  Age: 81 Year
  Sex: Male
  Weight: 83.2 kg

DRUGS (1)
  1. WARFARIN [Suspect]

REACTIONS (2)
  - Haematemesis [None]
  - International normalised ratio increased [None]
